FAERS Safety Report 25886693 (Version 1)
Quarter: 2025Q4

REPORT INFORMATION
  Report Type: Spontaneous
  Country: EU (occurrence: EU)
  Receive Date: 20251006
  Receipt Date: 20251006
  Transmission Date: 20260118
  Serious: Yes (Other)
  Sender: BAYER HEALTHCARE PHARMACEUTICALS INC.
  Company Number: EU-BAYER-2025A129046

PATIENT
  Age: 81 Year
  Sex: Male

DRUGS (1)
  1. KERENDIA [Suspect]
     Active Substance: FINERENONE
     Dosage: 10 MG
     Dates: start: 20250925, end: 20250925

REACTIONS (3)
  - Renal failure [None]
  - Contusion [None]
  - Blood urea increased [None]

NARRATIVE: CASE EVENT DATE: 20250926
